FAERS Safety Report 22637835 (Version 1)
Quarter: 2023Q2

REPORT INFORMATION
  Report Type: Spontaneous
  Country: US (occurrence: US)
  Receive Date: 20230626
  Receipt Date: 20230626
  Transmission Date: 20230722
  Serious: No
  Sender: FDA-Public Use
  Company Number: US-BRISTOL-MYERS SQUIBB COMPANY-2023-088025

PATIENT
  Age: 48 Year
  Sex: Female
  Weight: 49.44 kg

DRUGS (1)
  1. POMALYST [Suspect]
     Active Substance: POMALIDOMIDE
     Indication: Plasma cell myeloma
     Dosage: FREQ : DAILY FOR (21) DAYS AND OFF (7) DAYS
     Route: 048
     Dates: start: 202305, end: 202306

REACTIONS (5)
  - Platelet count decreased [Unknown]
  - Joint swelling [Unknown]
  - Gait disturbance [Recovering/Resolving]
  - Blood calcium decreased [Recovering/Resolving]
  - Light chain analysis increased [Unknown]
